FAERS Safety Report 12603674 (Version 2)
Quarter: 2016Q4

REPORT INFORMATION
  Report Type: Spontaneous
  Country: FR (occurrence: FR)
  Receive Date: 20160728
  Receipt Date: 20161103
  Transmission Date: 20170207
  Serious: Yes (Life-Threatening)
  Sender: FDA-Public Use
  Company Number: FR-SA-2016SA135336

PATIENT
  Age: 27 Year
  Sex: Female

DRUGS (4)
  1. STILNOX [Suspect]
     Active Substance: ZOLPIDEM TARTRATE
     Route: 048
     Dates: start: 20160613, end: 20160617
  2. ENDOXAN [Suspect]
     Active Substance: CYCLOPHOSPHAMIDE
     Indication: CUTANEOUS LUPUS ERYTHEMATOSUS
     Route: 042
     Dates: start: 20160617, end: 20160617
  3. ZOPHREN [Suspect]
     Active Substance: ONDANSETRON
     Route: 048
     Dates: start: 20160617, end: 20160617
  4. OXYCONTIN [Suspect]
     Active Substance: OXYCODONE HYDROCHLORIDE
     Dosage: 10 MG PROLONGED RELEASE FILM COATED TABLETS
     Route: 048
     Dates: start: 20160614, end: 20160617

REACTIONS (1)
  - Acute pulmonary oedema [Recovered/Resolved]

NARRATIVE: CASE EVENT DATE: 20160618
